FAERS Safety Report 23419342 (Version 2)
Quarter: 2024Q1

REPORT INFORMATION
  Report Type: Report from Study
  Country: NL (occurrence: NL)
  Receive Date: 20240118
  Receipt Date: 20240201
  Transmission Date: 20240410
  Serious: Yes (Death, Other)
  Sender: FDA-Public Use
  Company Number: NL-ABBVIE-5591456

PATIENT
  Age: 74 Year
  Sex: Female

DRUGS (10)
  1. CARBIDOPA\LEVODOPA [Suspect]
     Active Substance: CARBIDOPA\LEVODOPA
     Indication: Parkinson^s disease
     Dosage: MD: 8.0 ML, CD: 3.5 ML/H, ED: 2.0 ML,REMAINS AT 16 HOURS
     Route: 050
     Dates: start: 20231119, end: 20231215
  2. CARBIDOPA\LEVODOPA [Suspect]
     Active Substance: CARBIDOPA\LEVODOPA
     Route: 050
     Dates: start: 20120820
  3. CARBIDOPA\LEVODOPA [Suspect]
     Active Substance: CARBIDOPA\LEVODOPA
     Dosage: MD: 8.0 ML, CD: 3.5 ML/H, ED: 2.0 ML,REMAINS AT 16 HOURS
     Route: 050
     Dates: start: 20231215
  4. CARBIDOPA\LEVODOPA [Suspect]
     Active Substance: CARBIDOPA\LEVODOPA
     Route: 050
  5. CARBIDOPA\LEVODOPA [Suspect]
     Active Substance: CARBIDOPA\LEVODOPA
     Dosage: MD: 8.0 ML, CD: 3.5 ML/H, ED: 2.0 ML,REMAINS AT 16 HOURS
     Route: 050
     Dates: start: 20231020, end: 20231119
  6. SYMMETREL [Concomitant]
     Active Substance: AMANTADINE HYDROCHLORIDE
     Indication: Parkinson^s disease
     Dosage: TIME INTERVAL: 0.33333333 DAYS
  7. CARBIDOPA\LEVODOPA [Concomitant]
     Active Substance: CARBIDOPA\LEVODOPA
     Indication: Parkinson^s disease
  8. SODIUM CHLORIDE [Concomitant]
     Active Substance: SODIUM CHLORIDE
     Indication: Dehydration
  9. RIVASTIGMINE [Concomitant]
     Active Substance: RIVASTIGMINE
     Indication: Memory impairment
     Dosage: 4.6 MILLIGRAM
  10. RIVASTIGMINE [Concomitant]
     Active Substance: RIVASTIGMINE
     Indication: Memory impairment
     Dosage: 4.6 MILLIGRAM

REACTIONS (3)
  - Epilepsy [Not Recovered/Not Resolved]
  - Unevaluable event [Not Recovered/Not Resolved]
  - Parkinson^s disease [Fatal]

NARRATIVE: CASE EVENT DATE: 20240114
